FAERS Safety Report 7148262-4 (Version None)
Quarter: 2010Q4

REPORT INFORMATION
  Report Type: 
  Country: None (occurrence: None)
  Receive Date: 20101209
  Receipt Date: 20101207
  Transmission Date: 20110411
  Serious: Yes (Death)
  Sender: FDA-Public Use
  Company Number: PHHY2010US54831

PATIENT
  Sex: Male
  Weight: 68 kg

DRUGS (2)
  1. EXJADE [Suspect]
     Indication: NEOPLASM
     Dosage: 1250 MG, QD
     Route: 048
     Dates: start: 20100805
  2. BLOOD TRANSFUSION, AUXILIARY PRODUCTS [Concomitant]

REACTIONS (4)
  - CONSTIPATION [None]
  - DEATH [None]
  - DIARRHOEA [None]
  - DRY MOUTH [None]
